FAERS Safety Report 5996903-7 (Version None)
Quarter: 2008Q4

REPORT INFORMATION
  Report Type: 
  Country: None (occurrence: None)
  Receive Date: 20081212
  Receipt Date: 20081028
  Transmission Date: 20090506
  Serious: No
  Sender: FDA-Public Use
  Company Number: US-ABBOTT-08P-163-0484418-00

PATIENT
  Sex: Female
  Weight: 113.5 kg

DRUGS (2)
  1. HUMIRA [Suspect]
     Indication: DRUG USE FOR UNKNOWN INDICATION
     Dosage: HUMIRA PRE FILLED SYRINGE
  2. HUMIRA [Suspect]
     Dosage: HUMIRA PEN

REACTIONS (1)
  - ACCIDENTAL NEEDLE STICK [None]
